FAERS Safety Report 15552408 (Version 3)
Quarter: 2018Q4

REPORT INFORMATION
  Report Type: Spontaneous
  Country: FR (occurrence: FR)
  Receive Date: 20181025
  Receipt Date: 20181130
  Transmission Date: 20190205
  Serious: Yes (Hospitalization, Other)
  Sender: FDA-Public Use
  Company Number: FR-ALK-ABELLO A/S-2018AA003473

PATIENT

DRUGS (2)
  1. NASONEX [Concomitant]
     Active Substance: MOMETASONE FUROATE
     Indication: RHINITIS ALLERGIC
  2. ACARIZAX 12 SQ-HDM [Suspect]
     Active Substance: DERMATOPHAGOIDES FARINAE\DERMATOPHAGOIDES PTERONYSSINUS
     Indication: IMMUNE TOLERANCE INDUCTION
     Dosage: UNK
     Dates: start: 20181008, end: 20181008

REACTIONS (4)
  - Pulmonary embolism [Recovered/Resolved]
  - Phlebitis [Recovered/Resolved]
  - Pharyngeal paraesthesia [Recovered/Resolved]
  - Throat irritation [Recovered/Resolved]

NARRATIVE: CASE EVENT DATE: 201810
